FAERS Safety Report 17269861 (Version 1)
Quarter: 2020Q1

REPORT INFORMATION
  Report Type: Spontaneous
  Country: US (occurrence: US)
  Receive Date: 20200114
  Receipt Date: 20200114
  Transmission Date: 20200409
  Serious: No
  Sender: FDA-Public Use
  Company Number: US-FAGRON STERILE SERVICES-2078969

PATIENT
  Age: 21 Year
  Sex: Male
  Weight: 81.6 kg

DRUGS (1)
  1. ROCURONIUM BROMIDE INJ 10MG/ML (API) 5ML [Suspect]
     Active Substance: ROCURONIUM BROMIDE
     Dates: start: 20200102, end: 20200102

REACTIONS (1)
  - Drug ineffective [Recovered/Resolved]
